FAERS Safety Report 9896414 (Version 2)
Quarter: 2014Q1

REPORT INFORMATION
  Report Type: Spontaneous
  Country: US (occurrence: US)
  Receive Date: 20140213
  Receipt Date: 20140213
  Transmission Date: 20141002
  Serious: No
  Sender: FDA-Public Use
  Company Number: US-BRISTOL-MYERS SQUIBB COMPANY-19845593

PATIENT
  Age: 61 Year
  Sex: Female

DRUGS (14)
  1. ABATACEPT SUBQ INJECTION 125MG/ML [Suspect]
     Indication: RHEUMATOID ARTHRITIS
     Dosage: INTERRUPTED ON NOV13
     Route: 058
     Dates: start: 201309
  2. PREDNISONE [Concomitant]
     Dosage: 1MG TAB
  3. ZANTAC [Concomitant]
     Indication: DYSPEPSIA
     Dosage: 150 MG TABS
  4. PRILOSEC [Concomitant]
     Dosage: 20 MG CPDR
     Route: 048
  5. MULTIVITAMIN [Concomitant]
     Dosage: 1DF:1TAB
     Route: 048
  6. CALCIUM + VITAMIN D [Concomitant]
     Dosage: 1DF:1TAB
     Route: 048
  7. HYDROCHLOROTHIAZIDE [Concomitant]
     Dosage: 1DF:1 TAB?25MG TAB
     Route: 048
  8. CO-Q-10 PLUS [Concomitant]
     Dosage: 1DF:1CAP?200 MG CAPS
     Route: 048
  9. LISINOPRIL [Concomitant]
     Dosage: 1DF:1TAB?20 MG TABS
     Route: 048
  10. ATENOLOL [Concomitant]
     Dosage: 1DF:1 TAB?50 MG TABS
     Route: 048
  11. JANUMET [Concomitant]
     Dosage: 1 DF:1TAB?50-1000 MG
     Route: 048
  12. FOLIC ACID [Concomitant]
     Dosage: 1DF:1TAB?1 MG TABS
     Route: 048
  13. METHOTREXATE SODIUM [Concomitant]
     Dosage: 1DF:0.6 CC?ON SATS
     Route: 058
  14. LYRICA [Concomitant]
     Dosage: 1DF:1CAP?150 MG CAPS
     Route: 048

REACTIONS (2)
  - Rheumatoid arthritis [Not Recovered/Not Resolved]
  - Drug dose omission [Unknown]
